FAERS Safety Report 6486454-8 (Version None)
Quarter: 2009Q4

REPORT INFORMATION
  Report Type: 
  Country: None (occurrence: None)
  Receive Date: 20091210
  Receipt Date: 20091202
  Transmission Date: 20100525
  Serious: Yes (Other)
  Sender: FDA-Public Use
  Company Number: US-BAYER-200942094NA

PATIENT
  Age: 64 Year
  Sex: Male
  Weight: 84 kg

DRUGS (1)
  1. AVELOX [Suspect]
     Indication: DIVERTICULITIS
     Dosage: UNIT DOSE: 400 MG
     Dates: start: 20090909

REACTIONS (1)
  - TENDON INJURY [None]
